FAERS Safety Report 7110885-6 (Version None)
Quarter: 2010Q4

REPORT INFORMATION
  Report Type: 
  Country: None (occurrence: None)
  Receive Date: 20101118
  Receipt Date: 20101110
  Transmission Date: 20110411
  Serious: Yes (Hospitalization)
  Sender: FDA-Public Use
  Company Number: PHHY2010US74991

PATIENT
  Sex: Female

DRUGS (1)
  1. TOBI [Suspect]
     Indication: CYSTIC FIBROSIS
     Dosage: 300 MG, BID

REACTIONS (6)
  - COUGH [None]
  - CRYPTOCOCCOSIS [None]
  - DEVICE RELATED INFECTION [None]
  - PULMONARY FUNCTION TEST ABNORMAL [None]
  - RHINORRHOEA [None]
  - SEPSIS [None]
